FAERS Safety Report 4292798-0 (Version None)
Quarter: 2004Q1

REPORT INFORMATION
  Report Type: 
  Country: None (occurrence: None)
  Receive Date: 20040210
  Receipt Date: 20040126
  Transmission Date: 20041129
  Serious: Yes (Other)
  Sender: FDA-Public Use
  Company Number: S04-SWE-00438-01

PATIENT
  Age: 59 Year
  Sex: Male

DRUGS (6)
  1. EBIXA (MEMANTINE) [Suspect]
     Indication: PARKINSONISM
     Dosage: 10 MG QD PO
     Route: 048
     Dates: start: 20030818, end: 20030917
  2. COTRIM [Suspect]
     Indication: DIVERTICULUM
     Dates: start: 20030912, end: 20030901
  3. METRONIDAZOLE [Suspect]
     Indication: DIVERTICULITIS
     Dosage: 500 MG QD PO
     Route: 048
     Dates: start: 20030912, end: 20030901
  4. KALICPOS-D (PIRACETAM) [Concomitant]
  5. DIDRONATE (ETIDRONATE DISODIUM) [Concomitant]
  6. MODURETIC MITE ^MSD^ [Concomitant]

REACTIONS (10)
  - ABDOMINAL PAIN [None]
  - ABNORMAL BEHAVIOUR [None]
  - DIVERTICULITIS [None]
  - HYPOMANIA [None]
  - INITIAL INSOMNIA [None]
  - MIDDLE INSOMNIA [None]
  - PERSONALITY DISORDER [None]
  - SLEEP DISORDER [None]
  - STARING [None]
  - STRESS SYMPTOMS [None]
